FAERS Safety Report 9310727 (Version 1)
Quarter: 2013Q2

REPORT INFORMATION
  Report Type: Spontaneous
  Country: US (occurrence: US)
  Receive Date: 20130528
  Receipt Date: 20130528
  Transmission Date: 20140414
  Serious: No
  Sender: FDA-Public Use
  Company Number: US-009507513-1305USA012667

PATIENT
  Sex: Female

DRUGS (2)
  1. NASONEX [Suspect]
     Indication: NASOPHARYNGITIS
     Route: 045
  2. NASONEX [Suspect]
     Indication: HYPERSENSITIVITY

REACTIONS (2)
  - Nasal disorder [Recovering/Resolving]
  - Product quality issue [Unknown]
